FAERS Safety Report 11230864 (Version 1)
Quarter: 2015Q2

REPORT INFORMATION
  Report Type: Spontaneous
  Country: US (occurrence: None)
  Receive Date: 20150629
  Receipt Date: 20150629
  Transmission Date: 20150821
  Serious: Yes (Life-Threatening)
  Sender: FDA-Public Use
  Company Number: None

PATIENT
  Sex: Female
  Weight: 86.18 kg

DRUGS (5)
  1. LAMICTAL [Concomitant]
     Active Substance: LAMOTRIGINE
  2. VITAMIN D [Concomitant]
     Active Substance: CHOLECALCIFEROL
  3. KLONAPIN [Concomitant]
  4. WELLBUTRIN [Concomitant]
     Active Substance: BUPROPION HYDROCHLORIDE
  5. LEXAPRO [Suspect]
     Active Substance: ESCITALOPRAM OXALATE
     Indication: DEPRESSION
     Dosage: 1
     Route: 048
     Dates: start: 20070801, end: 20150626

REACTIONS (5)
  - Impaired work ability [None]
  - Product substitution issue [None]
  - Suicidal ideation [None]
  - Decreased activity [None]
  - Crying [None]
